FAERS Safety Report 7313587-6 (Version None)
Quarter: 2011Q1

REPORT INFORMATION
  Report Type: 
  Country: None (occurrence: None)
  Receive Date: 20110218
  Receipt Date: 20110218
  Transmission Date: 20110831
  Serious: Yes (Disabling, Other)
  Sender: FDA-Public Use
  Company Number: None

PATIENT
  Sex: Female
  Weight: 61.2356 kg

DRUGS (1)
  1. AMLODIPINE BESYLATE [Suspect]
     Indication: HYPERTENSION
     Dosage: 5 MG TAZYD 1 PER DAY
     Dates: start: 20091211, end: 20110117

REACTIONS (4)
  - HEART RATE IRREGULAR [None]
  - DIZZINESS [None]
  - VISUAL IMPAIRMENT [None]
  - JOINT SWELLING [None]
